FAERS Safety Report 8952682 (Version 3)
Quarter: 2013Q2

REPORT INFORMATION
  Report Type: Report from Study
  Country: SE (occurrence: SE)
  Receive Date: 20121205
  Receipt Date: 20130403
  Transmission Date: 20140414
  Serious: Yes (Hospitalization, Other)
  Sender: FDA-Public Use
  Company Number: SE-ABBOTT-12P-150-1015214-00

PATIENT
  Age: 60 Year
  Sex: Male

DRUGS (4)
  1. HUMIRA [Suspect]
     Indication: ANKYLOSING SPONDYLITIS
     Route: 058
     Dates: start: 20080101, end: 20101001
  2. METHOTREXATE [Suspect]
     Route: 048
     Dates: start: 20080116, end: 20101103
  3. PREDNISOLON [Suspect]
     Indication: ANKYLOSING SPONDYLITIS
     Route: 048
     Dates: start: 20080116, end: 20101103
  4. IPREN [Concomitant]
     Indication: PRODUCT USED FOR UNKNOWN INDICATION

REACTIONS (5)
  - Large intestinal ulcer haemorrhage [Recovered/Resolved]
  - Spinal compression fracture [Unknown]
  - Psoas abscess [Unknown]
  - Diverticular perforation [Unknown]
  - Malaise [Unknown]
